FAERS Safety Report 12824082 (Version 1)
Quarter: 2016Q4

REPORT INFORMATION
  Report Type: Spontaneous
  Country: US (occurrence: US)
  Receive Date: 20161007
  Receipt Date: 20161007
  Transmission Date: 20170207
  Serious: No
  Sender: FDA-Public Use
  Company Number: US-INDIVIOR LIMITED-INDV-088794-2016

PATIENT
  Age: 0 Year
  Sex: Male
  Weight: 5.3 kg

DRUGS (6)
  1. PRENATAL VITAMINS                  /02014401/ [Suspect]
     Active Substance: VITAMINS
     Indication: PRENATAL CARE
     Dosage: UNK, DAILY
     Route: 064
     Dates: start: 200905, end: 20100224
  2. BUPRENORPHINE GENERIC TAB [Suspect]
     Active Substance: BUPRENORPHINE
     Dosage: 2 MG,DAILY FOR 32 MONTHS
     Route: 063
     Dates: start: 20100224, end: 2012
  3. BUPRENORPHINE GENERIC TAB [Suspect]
     Active Substance: BUPRENORPHINE
     Indication: DRUG DEPENDENCE
     Dosage: 8 MG, DAILY FOR 32 WEEKS
     Route: 064
     Dates: start: 200907, end: 20100224
  4. SUBOXONE [Suspect]
     Active Substance: BUPRENORPHINE HYDROCHLORIDE\NALOXONE HYDROCHLORIDE
     Indication: DRUG DEPENDENCE
     Dosage: 8 MG, QD FOR 8 WEEKS
     Route: 064
     Dates: start: 200905, end: 200907
  5. NICOTINE. [Suspect]
     Active Substance: NICOTINE
     Dosage: ONE PACK OF CIGARETTES
     Route: 063
     Dates: start: 20100224, end: 2012
  6. NICOTINE. [Suspect]
     Active Substance: NICOTINE
     Indication: NICOTINE DEPENDENCE
     Dosage: ONE PACK OF CIGATETTES DAILY
     Route: 064
     Dates: start: 200905, end: 20100224

REACTIONS (3)
  - Foetal exposure during pregnancy [Recovered/Resolved]
  - Exposure during breast feeding [Recovered/Resolved]
  - Macrosomia [Recovered/Resolved]

NARRATIVE: CASE EVENT DATE: 200905
